FAERS Safety Report 10534883 (Version 1)
Quarter: 2014Q4

REPORT INFORMATION
  Report Type: Spontaneous
  Country: US (occurrence: US)
  Receive Date: 20141022
  Receipt Date: 20141022
  Transmission Date: 20150529
  Serious: No
  Sender: FDA-Public Use
  Company Number: US-ASTRAZENECA-2013SE82811

PATIENT
  Age: 45 Year
  Sex: Female
  Weight: 69.9 kg

DRUGS (9)
  1. VENAFLEX [Concomitant]
  2. VALIUM [Concomitant]
     Active Substance: DIAZEPAM
  3. GEODON [Concomitant]
     Active Substance: ZIPRASIDONE HYDROCHLORIDE\ZIPRASIDONE MESYLATE
     Indication: BIPOLAR DISORDER
  4. TOPAMAX [Concomitant]
     Active Substance: TOPIRAMATE
  5. LAMICTAL [Concomitant]
     Active Substance: LAMOTRIGINE
  6. CYMBALTA [Concomitant]
     Active Substance: DULOXETINE HYDROCHLORIDE
  7. PHENEGREN [Concomitant]
     Indication: PROPHYLAXIS AGAINST GASTROINTESTINAL ULCER
  8. CRESTOR [Suspect]
     Active Substance: ROSUVASTATIN CALCIUM
     Indication: BLOOD CHOLESTEROL
     Route: 048
     Dates: start: 2008
  9. AMBIEN [Concomitant]
     Active Substance: ZOLPIDEM TARTRATE

REACTIONS (2)
  - Blood cholesterol increased [Unknown]
  - Therapy cessation [Unknown]
